FAERS Safety Report 8226283-8 (Version None)
Quarter: 2012Q1

REPORT INFORMATION
  Report Type: 
  Country: None (occurrence: None)
  Receive Date: 20120321
  Receipt Date: 20120313
  Transmission Date: 20120608
  Serious: Yes (Other)
  Sender: FDA-Public Use
  Company Number: JP-VERTEX PHARMACEUTICALS INC.-AE-2012-003750

PATIENT
  Age: 59 Year
  Sex: Male

DRUGS (8)
  1. TELAVIC (TELAPREVIR) [Suspect]
     Indication: HEPATITIS C
     Route: 048
     Dates: start: 20120119
  2. RIBAVIRIN [Concomitant]
     Indication: HEPATITIS C
     Route: 048
     Dates: start: 20120119, end: 20120208
  3. OLMESARTAN MEDOXOMIL [Concomitant]
  4. RIBAVIRIN [Concomitant]
     Route: 048
     Dates: start: 20120301
  5. FAMOTIDINE [Concomitant]
  6. PEGINTERFERON ALFA-2A [Concomitant]
     Indication: HEPATITIS C
     Route: 058
     Dates: start: 20120119, end: 20120208
  7. PEGINTERFERON ALFA-2A [Concomitant]
     Route: 058
     Dates: start: 20120209
  8. RIBAVIRIN [Concomitant]
     Route: 048
     Dates: start: 20120209, end: 20120229

REACTIONS (1)
  - NEUTROPHIL COUNT DECREASED [None]
